FAERS Safety Report 5864416-9 (Version None)
Quarter: 2008Q3

REPORT INFORMATION
  Report Type: 
  Country: None (occurrence: None)
  Receive Date: 20080829
  Receipt Date: 20080822
  Transmission Date: 20090109
  Serious: Yes (Hospitalization)
  Sender: FDA-Public Use
  Company Number: US-GENENTECH-266778

PATIENT
  Sex: Female
  Weight: 54.1 kg

DRUGS (13)
  1. BLINDED ANTI-CD40 [Suspect]
     Indication: DIFFUSE LARGE B-CELL LYMPHOMA
     Dosage: 440 MG, 1/WEEK
     Route: 042
     Dates: start: 20080807, end: 20080807
  2. BLINDED PLACEBO [Suspect]
     Indication: DIFFUSE LARGE B-CELL LYMPHOMA
     Dosage: 440 MG, 1/WEEK
     Route: 042
     Dates: start: 20080807, end: 20080807
  3. BLINDED ANTI-CD40 [Suspect]
     Dosage: 110 MG, SINGLE
     Route: 042
     Dates: start: 20080729, end: 20080729
  4. BLINDED PLACEBO [Suspect]
     Dosage: 110 MG, SINGLE
     Route: 042
     Dates: start: 20080729, end: 20080729
  5. BLINDED ANTI-CD40 [Suspect]
     Dosage: 220 MG, SINGLE
     Route: 042
     Dates: start: 20080802, end: 20080802
  6. BLINDED PLACEBO [Suspect]
     Dosage: 220 MG, SINGLE
     Route: 042
     Dates: start: 20080802, end: 20080802
  7. RITUXAN [Suspect]
     Indication: DIFFUSE LARGE B-CELL LYMPHOMA
     Dosage: 585 MG, Q3W
     Route: 042
     Dates: start: 20080728, end: 20080728
  8. ETOPOSIDE [Suspect]
     Indication: DIFFUSE LARGE B-CELL LYMPHOMA
     Dosage: 115 MG, Q3W
     Route: 042
     Dates: start: 20080730, end: 20080730
  9. ETOPOSIDE [Suspect]
     Dosage: 155 MG, Q3W
     Route: 042
     Dates: start: 20080731, end: 20080731
  10. ETOPOSIDE [Suspect]
     Dosage: 155 MG, Q3W
     Route: 042
     Dates: start: 20080801, end: 20080801
  11. CARBOPLATIN [Suspect]
     Indication: DIFFUSE LARGE B-CELL LYMPHOMA
     Dosage: 625 MG, Q3W
     Route: 042
     Dates: start: 20080731, end: 20080731
  12. IFOSFAMIDE [Suspect]
     Indication: DIFFUSE LARGE B-CELL LYMPHOMA
     Dosage: 7800 MG, Q3W
     Route: 042
     Dates: start: 20080731, end: 20080731
  13. LEVAQUIN [Concomitant]
     Indication: PYREXIA
     Dosage: UNK
     Dates: start: 20080808

REACTIONS (1)
  - FEBRILE NEUTROPENIA [None]
